FAERS Safety Report 7609621-6 (Version None)
Quarter: 2011Q3

REPORT INFORMATION
  Report Type: 
  Country: None (occurrence: None)
  Receive Date: 20110714
  Receipt Date: 20110706
  Transmission Date: 20111222
  Serious: Yes (Hospitalization)
  Sender: FDA-Public Use
  Company Number: PHHY2011US44125

PATIENT
  Age: 69 Year
  Sex: Female

DRUGS (7)
  1. PREVACID [Concomitant]
  2. POTASSIUM [Concomitant]
  3. CIPRIL [Concomitant]
  4. TOBI [Suspect]
     Dosage: UNK
  5. LASIX [Suspect]
  6. ATENOLOL [Concomitant]
  7. ADULENEB [Concomitant]

REACTIONS (6)
  - HYPOPHAGIA [None]
  - BLOOD PRESSURE INCREASED [None]
  - DYSSTASIA [None]
  - CHEST DISCOMFORT [None]
  - DYSPNOEA [None]
  - GENERAL PHYSICAL HEALTH DETERIORATION [None]
